FAERS Safety Report 7180589 (Version 18)
Quarter: 2015Q4

REPORT INFORMATION
  Report Type: Report from Study
  Country: CA (occurrence: CA)
  Receive Date: 20091118
  Receipt Date: 20151224
  Transmission Date: 20160305
  Serious: Yes (Death, Hospitalization, Other)
  Sender: FDA-Public Use
  Company Number: PHHY2009CA48312

PATIENT
  Age: 81 Year
  Sex: Male
  Weight: 65.8 kg

DRUGS (6)
  1. METFORMIN [Concomitant]
     Active Substance: METFORMIN HYDROCHLORIDE
     Indication: TYPE 2 DIABETES MELLITUS
     Route: 065
  2. HYDROXYUREA. [Concomitant]
     Active Substance: HYDROXYUREA
     Indication: PRODUCT USED FOR UNKNOWN INDICATION
     Route: 065
  3. ASA [Concomitant]
     Active Substance: ASPIRIN
     Indication: PRODUCT USED FOR UNKNOWN INDICATION
     Route: 065
  4. SANDOSTATIN LAR DEPOT [Suspect]
     Active Substance: OCTREOTIDE ACETATE
     Indication: NEUROENDOCRINE TUMOUR
     Dosage: 20 MG, EVERY 4 WEEKS
     Route: 030
     Dates: start: 20091029
  5. SANDOSTATIN LAR DEPOT [Suspect]
     Active Substance: OCTREOTIDE ACETATE
     Indication: METASTATIC CARCINOID TUMOUR
     Dosage: 30 MG, EVERY 4 WEEKS
     Route: 030
     Dates: end: 20151026
  6. HYZAAR [Concomitant]
     Active Substance: HYDROCHLOROTHIAZIDE\LOSARTAN POTASSIUM
     Indication: PRODUCT USED FOR UNKNOWN INDICATION
     Route: 065

REACTIONS (23)
  - Second primary malignancy [Unknown]
  - Anaemia [Recovering/Resolving]
  - Platelet count increased [Unknown]
  - Malaise [Unknown]
  - Haemochromatosis [Unknown]
  - Blood pressure increased [Unknown]
  - Cataract [Unknown]
  - Blood creatinine increased [Recovering/Resolving]
  - Gallbladder disorder [Unknown]
  - Pallor [Unknown]
  - Abdominal discomfort [Recovering/Resolving]
  - Myelofibrosis [Unknown]
  - Serum ferritin increased [Not Recovered/Not Resolved]
  - Myeloproliferative disorder [Unknown]
  - Essential thrombocythaemia [Unknown]
  - Prostate cancer [Unknown]
  - Neutrophil count increased [Not Recovered/Not Resolved]
  - Intestinal ischaemia [Unknown]
  - Dyspepsia [Unknown]
  - Death [Fatal]
  - Leukocytosis [Not Recovered/Not Resolved]
  - Cachexia [Unknown]
  - Fatigue [Recovering/Resolving]

NARRATIVE: CASE EVENT DATE: 201309
